FAERS Safety Report 21686014 (Version 1)
Quarter: 2022Q4

REPORT INFORMATION
  Report Type: Report from Study
  Country: GB (occurrence: GB)
  Receive Date: 20221206
  Receipt Date: 20221206
  Transmission Date: 20230112
  Serious: No
  Sender: FDA-Public Use
  Company Number: GB-GBT-017657

PATIENT

DRUGS (1)
  1. VOXELOTOR [Suspect]
     Active Substance: VOXELOTOR
     Indication: Haemolytic anaemia
     Dosage: 90 TABLETS PER BOTTLE, 1 BOTTLE (1 MONTH SUPPLY)
     Route: 048
     Dates: start: 20220826

REACTIONS (2)
  - Dysphagia [Unknown]
  - Condition aggravated [Unknown]
